FAERS Safety Report 7146654-0 (Version None)
Quarter: 2010Q4

REPORT INFORMATION
  Report Type: 
  Country: None (occurrence: None)
  Receive Date: 20101208
  Receipt Date: 20101203
  Transmission Date: 20110411
  Serious: Yes (Death, Hospitalization, Other)
  Sender: FDA-Public Use
  Company Number: FR-AMGEN-FRASP2010007298

PATIENT

DRUGS (6)
  1. VECTIBIX [Suspect]
     Indication: COLON CANCER METASTATIC
     Dosage: 250 MG, UNK
     Route: 042
     Dates: start: 20100630, end: 20101029
  2. NAPROSYN [Concomitant]
     Dosage: 1000 MG, UNK
     Route: 048
  3. LAMALINE                           /00764901/ [Concomitant]
     Route: 048
  4. FOLINIQUE ACIDE [Concomitant]
     Route: 042
  5. FLUOROURACILE [Concomitant]
     Route: 042
  6. UFT [Concomitant]
     Route: 048

REACTIONS (4)
  - AORTIC DISSECTION [None]
  - BACK PAIN [None]
  - DILATATION ATRIAL [None]
  - PARAESTHESIA [None]
